FAERS Safety Report 8763786 (Version 2)
Quarter: 2013Q1

REPORT INFORMATION
  Report Type: Spontaneous
  Country: US (occurrence: US)
  Receive Date: 20120831
  Receipt Date: 20130228
  Transmission Date: 20140127
  Serious: Yes (Hospitalization, Other)
  Sender: FDA-Public Use
  Company Number: US-BAYER-2012-089036

PATIENT
  Age: 16 Year
  Sex: Female
  Weight: 54.42 kg

DRUGS (5)
  1. YASMIN [Suspect]
     Indication: CONTRACEPTION
     Dosage: UNK
     Dates: start: 2004, end: 2005
  2. ABILIFY [Concomitant]
     Indication: BIPOLAR DISORDER
     Dosage: 5 MG, HS
  3. STRATTERA [Concomitant]
     Indication: ATTENTION DEFICIT/HYPERACTIVITY DISORDER
     Dosage: 50 MG, UNK
  4. IRON [Concomitant]
     Indication: ANAEMIA
  5. MULTIVITAMIN [Concomitant]

REACTIONS (8)
  - Gallbladder injury [None]
  - Cholecystitis chronic [None]
  - Injury [None]
  - Pain [None]
  - Emotional distress [None]
  - General physical health deterioration [None]
  - Pain [None]
  - Anxiety [None]
